FAERS Safety Report 16357999 (Version 1)
Quarter: 2019Q2

REPORT INFORMATION
  Report Type: Report from Study
  Country: EC (occurrence: EC)
  Receive Date: 20190527
  Receipt Date: 20190527
  Transmission Date: 20190711
  Serious: Yes (Other)
  Sender: FDA-Public Use
  Company Number: PHHY2019EC102512

PATIENT
  Age: 52 Year
  Sex: Male
  Weight: 50 kg

DRUGS (2)
  1. TASIGNA [Suspect]
     Active Substance: NILOTINIB
     Indication: CHRONIC MYELOID LEUKAEMIA
     Dosage: 200 MG, QD
     Route: 048
     Dates: start: 20180914
  2. OMEPRAZOLE. [Concomitant]
     Active Substance: OMEPRAZOLE
     Indication: SPLENOMEGALY
     Dosage: 20 MG, QD
     Route: 048
     Dates: start: 2017, end: 201811

REACTIONS (5)
  - Influenza [Recovering/Resolving]
  - Inappropriate schedule of product administration [Recovered/Resolved]
  - Large intestinal haemorrhage [Recovering/Resolving]
  - Dizziness [Not Recovered/Not Resolved]
  - Headache [Recovering/Resolving]

NARRATIVE: CASE EVENT DATE: 20180914
